FAERS Safety Report 6899974-9 (Version None)
Quarter: 2010Q3

REPORT INFORMATION
  Report Type: 
  Country: None (occurrence: None)
  Receive Date: 20100708
  Receipt Date: 20100401
  Transmission Date: 20110219
  Serious: Yes (Other)
  Sender: FDA-Public Use
  Company Number: 2010042752

PATIENT
  Age: 63 Year
  Sex: Female
  Weight: 55.8 kg

DRUGS (4)
  1. CHANTIX [Suspect]
     Indication: SMOKING CESSATION THERAPY
     Dosage: 1 MG, 2X/DAY
     Dates: start: 20100101
  2. MS CONTIN [Concomitant]
  3. LORTAB [Concomitant]
  4. IMMUNE GLOBULIN INTRAVENOUS (HUMAN) [Concomitant]

REACTIONS (5)
  - ABNORMAL DREAMS [None]
  - DEPRESSION [None]
  - HALLUCINATION, VISUAL [None]
  - MALAISE [None]
  - WEIGHT INCREASED [None]
